FAERS Safety Report 9229794 (Version 3)
Quarter: 2014Q1

REPORT INFORMATION
  Report Type: Spontaneous
  Country: BR (occurrence: BR)
  Receive Date: 20130415
  Receipt Date: 20140206
  Transmission Date: 20141002
  Serious: Yes (Other)
  Sender: FDA-Public Use
  Company Number: BR-BIOGENIDEC-2013BI032255

PATIENT
  Age: 39 Year
  Sex: Male

DRUGS (4)
  1. TYSABRI [Suspect]
     Indication: MULTIPLE SCLEROSIS
     Route: 042
     Dates: start: 20130306
  2. SERTRALINE [Concomitant]
     Indication: DEPRESSION
  3. ATENOLOL [Concomitant]
     Indication: HYPERTENSION
  4. BACLOFEN [Concomitant]

REACTIONS (1)
  - Thrombosis [Recovered/Resolved]
